FAERS Safety Report 24059272 (Version 1)
Quarter: 2024Q3

REPORT INFORMATION
  Report Type: Spontaneous
  Country: FR (occurrence: FR)
  Receive Date: 20240708
  Receipt Date: 20240708
  Transmission Date: 20241017
  Serious: Yes (Life-Threatening, Other)
  Sender: AUROBINDO
  Company Number: FR-AFSSAPS-RN2024000735

PATIENT
  Age: 49 Year
  Sex: Male

DRUGS (3)
  1. VALGANCICLOVIR [Suspect]
     Active Substance: VALGANCICLOVIR
     Indication: Cytomegalovirus infection
     Dosage: 900 MILLIGRAM, ONCE A DAY(TIMES A DAY)
     Route: 048
     Dates: start: 20240612
  2. CELLCEPT [Suspect]
     Active Substance: MYCOPHENOLATE MOFETIL
     Indication: Liver transplant
     Dosage: 1 GRAM, ONCE A DAY(500 MG 2 TIMES A DAY)
     Route: 048
     Dates: start: 20240612
  3. TACROLIMUS [Suspect]
     Active Substance: TACROLIMUS
     Indication: Liver transplant
     Dosage: 5 MILLIGRAM, ONCE A DAY(2.5 MG 2 TIMES A DAY)
     Route: 048
     Dates: start: 20240614

REACTIONS (3)
  - Acute kidney injury [Not Recovered/Not Resolved]
  - Hyponatraemia [Not Recovered/Not Resolved]
  - Metabolic acidosis [Not Recovered/Not Resolved]

NARRATIVE: CASE EVENT DATE: 20240619
